FAERS Safety Report 26215448 (Version 1)
Quarter: 2025Q4

REPORT INFORMATION
  Report Type: Report from Study
  Country: US (occurrence: US)
  Receive Date: 20251231
  Receipt Date: 20251231
  Transmission Date: 20260118
  Serious: No
  Sender: SANDOZ
  Company Number: US-SANDOZ-SDZ2024US084895

PATIENT
  Age: 7 Year
  Sex: Male

DRUGS (1)
  1. OMNITROPE [Suspect]
     Active Substance: SOMATROPIN
     Indication: Hypopituitarism
     Dosage: 0.9 MG, QD (STRENGTH - 10 MG)
     Dates: start: 20240919

REACTIONS (3)
  - Product storage error [Unknown]
  - Circumstance or information capable of leading to medication error [Unknown]
  - Device breakage [Unknown]

NARRATIVE: CASE EVENT DATE: 20241002
